FAERS Safety Report 7749190-3 (Version None)
Quarter: 2011Q3

REPORT INFORMATION
  Report Type: 
  Country: None (occurrence: None)
  Receive Date: 20110914
  Receipt Date: 20110907
  Transmission Date: 20111222
  Serious: Yes (Other)
  Sender: FDA-Public Use
  Company Number: US-BAYER-2011-048821

PATIENT
  Age: 31 Year
  Sex: Female
  Weight: 54.422 kg

DRUGS (1)
  1. MIRENA [Suspect]
     Indication: CONTRACEPTION
     Dosage: 20 ?G, CONT
     Route: 015
     Dates: start: 20110228, end: 20110525

REACTIONS (5)
  - ABDOMINAL PAIN [None]
  - UTERINE SPASM [None]
  - DEVICE DISLOCATION [None]
  - VAGINAL HAEMORRHAGE [None]
  - MEDICAL DEVICE COMPLICATION [None]
